FAERS Safety Report 5123596-3 (Version None)
Quarter: 2006Q4

REPORT INFORMATION
  Report Type: 
  Country: None (occurrence: None)
  Receive Date: 20061010
  Receipt Date: 20060519
  Transmission Date: 20070319
  Serious: Yes (Other)
  Sender: FDA-Public Use
  Company Number: PHFR2006GB01785

PATIENT
  Age: 48 Year
  Sex: Male

DRUGS (4)
  1. CLOZARIL [Suspect]
     Indication: SCHIZOPHRENIA
     Dosage: 175 MG MANE, 200MG NOCTE
     Route: 048
  2. CLOZARIL [Suspect]
     Dosage: 150MG MANE / 200MG NOCTE
     Route: 048
     Dates: start: 20060202
  3. CLOZARIL [Suspect]
     Dosage: 150MG / 200MG
     Route: 048
     Dates: end: 20060915
  4. CLOZARIL [Suspect]
     Dosage: 162.5MG MANE; 200MG NOCTE
     Route: 048
     Dates: start: 20060915

REACTIONS (17)
  - AGITATION [None]
  - BETA HAEMOLYTIC STREPTOCOCCAL INFECTION [None]
  - CONJUNCTIVITIS [None]
  - CONSTIPATION [None]
  - DIABETES MELLITUS INSULIN-DEPENDENT [None]
  - EAR INFECTION [None]
  - ELECTROCARDIOGRAM QT CORRECTED INTERVAL PROLONGED [None]
  - HEADACHE [None]
  - HYPERGLYCAEMIA [None]
  - HYPERTENSION [None]
  - MALAISE [None]
  - POOR PERIPHERAL CIRCULATION [None]
  - PRURITUS [None]
  - SEDATION [None]
  - TACHYCARDIA [None]
  - URINARY INCONTINENCE [None]
  - WHITE BLOOD CELL COUNT INCREASED [None]
